FAERS Safety Report 21791468 (Version 2)
Quarter: 2022Q4

REPORT INFORMATION
  Report Type: Spontaneous
  Country: DE (occurrence: DE)
  Receive Date: 20221228
  Receipt Date: 20221230
  Transmission Date: 20230112
  Serious: Yes (Other)
  Sender: FDA-Public Use
  Company Number: DE-BIOGEN-2022BI01177577

PATIENT
  Sex: Female

DRUGS (2)
  1. TECFIDERA [Suspect]
     Active Substance: DIMETHYL FUMARATE
     Indication: Multiple sclerosis
     Route: 050
     Dates: start: 20221205, end: 202212
  2. DIMETHYL FUMARATE (AUTHORIZED GENERIC) [Concomitant]
     Indication: Multiple sclerosis
     Route: 050
     Dates: start: 20221212, end: 20221219

REACTIONS (2)
  - Rash maculo-papular [Unknown]
  - Urticaria [Unknown]
